FAERS Safety Report 22398994 (Version 1)
Quarter: 2023Q2

REPORT INFORMATION
  Report Type: Spontaneous
  Country: US (occurrence: US)
  Receive Date: 20230602
  Receipt Date: 20230602
  Transmission Date: 20230721
  Serious: No
  Sender: FDA-Public Use
  Company Number: US-BRISTOL-MYERS SQUIBB COMPANY-2023-077798

PATIENT
  Age: 88 Year
  Sex: Male
  Weight: 86.3 kg

DRUGS (1)
  1. POMALYST [Suspect]
     Active Substance: POMALIDOMIDE
     Indication: Plasma cell myeloma
     Dosage: FREQ -4 MG Q DAY 21 OF 28 DAYS
     Route: 048

REACTIONS (1)
  - Asthenia [Unknown]
